FAERS Safety Report 6105561-2 (Version None)
Quarter: 2009Q1

REPORT INFORMATION
  Report Type: 
  Country: None (occurrence: None)
  Receive Date: 20090304
  Receipt Date: 20090304
  Transmission Date: 20090719
  Serious: Yes (Other)
  Sender: FDA-Public Use
  Company Number: None

PATIENT
  Sex: Male
  Weight: 6.804 kg

DRUGS (2)
  1. OMNICEF [Suspect]
     Indication: RESPIRATORY DISORDER
     Dosage: 4ML 1X/DAY PO
     Route: 048
     Dates: start: 20090218, end: 20090302
  2. OMNICEF [Suspect]
     Indication: RHINORRHOEA
     Dosage: 4ML 1X/DAY PO
     Route: 048
     Dates: start: 20090218, end: 20090302

REACTIONS (2)
  - DIARRHOEA [None]
  - FAECES DISCOLOURED [None]
